FAERS Safety Report 14204020 (Version 4)
Quarter: 2023Q2

REPORT INFORMATION
  Report Type: Spontaneous
  Country: DE (occurrence: DE)
  Receive Date: 20171120
  Receipt Date: 20230627
  Transmission Date: 20230722
  Serious: Yes (Hospitalization, Other)
  Sender: FDA-Public Use
  Company Number: DE-MLMSERVICE-20171113-0961718-1

PATIENT
  Age: 56 Year
  Sex: Male

DRUGS (9)
  1. TACROLIMUS [Interacting]
     Active Substance: TACROLIMUS
     Indication: Renal transplant
     Dosage: UNK UNK, UNKNOWN FREQ.
     Route: 065
  2. RITONAVIR [Interacting]
     Active Substance: RITONAVIR
     Indication: Hepatitis C
     Dosage: UNK UNK, UNKNOWN FREQ.
     Route: 065
  3. OMBITASVIR [Interacting]
     Active Substance: OMBITASVIR
     Indication: Hepatitis C
     Dosage: UNK UNK, UNKNOWN FREQ.
     Route: 065
  4. PARITAPREVIR [Interacting]
     Active Substance: PARITAPREVIR
     Indication: Hepatitis C
     Dosage: UNK UNK, UNKNOWN FREQ.
     Route: 065
  5. DASABUVIR [Interacting]
     Active Substance: DASABUVIR
     Indication: Hepatitis C
     Dosage: UNK UNK, UNKNOWN FREQ.
     Route: 065
  6. RIFAMPIN [Interacting]
     Active Substance: RIFAMPIN
     Indication: Antibiotic therapy
     Dosage: 600 MG, ONCE DAILY (1-2)
     Route: 065
  7. RIFAMPIN [Interacting]
     Active Substance: RIFAMPIN
     Indication: Enzyme induction
  8. MYCOPHENOLIC ACID [Concomitant]
     Active Substance: MYCOPHENOLIC ACID
     Indication: Renal transplant
     Dosage: UNK UNK, UNKNOWN FREQ.
     Route: 065
  9. PREDNISOLONE [Concomitant]
     Active Substance: PREDNISOLONE
     Indication: Renal transplant
     Dosage: UNK UNK, UNKNOWN FREQ. (LOW DOSE)
     Route: 065

REACTIONS (7)
  - Toxicity to various agents [Recovered/Resolved]
  - Gastric ulcer [Recovered/Resolved]
  - Pneumonia [Recovered/Resolved]
  - Acute kidney injury [Recovered/Resolved]
  - Hepatitis C [Unknown]
  - Drug interaction [Unknown]
  - Drug interaction [Unknown]
